FAERS Safety Report 13415906 (Version 5)
Quarter: 2020Q1

REPORT INFORMATION
  Report Type: Spontaneous
  Country: US (occurrence: US)
  Receive Date: 20170407
  Receipt Date: 20200106
  Transmission Date: 20200409
  Serious: Yes (Hospitalization)
  Sender: FDA-Public Use
  Company Number: US-PFIZER INC-2017146518

PATIENT
  Age: 20 Year
  Sex: Male
  Weight: 61.23 kg

DRUGS (7)
  1. GENOTROPIN MQ [Suspect]
     Active Substance: SOMATROPIN
     Indication: GROWTH HORMONE DEFICIENCY
     Dosage: 0.4 MG, 1X/DAY
     Dates: start: 20160711, end: 201702
  2. GENOTROPIN MQ [Suspect]
     Active Substance: SOMATROPIN
     Indication: MOOD SWINGS
     Dosage: 0.4 MG, 1X/DAY(AT NIGHT)
  3. GENOTROPIN MQ [Suspect]
     Active Substance: SOMATROPIN
     Indication: HYPOPITUITARISM
     Dosage: 0.4 MG, 1X/DAY (7 DAY/WK)
     Route: 058
     Dates: start: 20160824
  4. ERGOCALCIFEROL. [Concomitant]
     Active Substance: ERGOCALCIFEROL
     Indication: VITAMIN D DEFICIENCY
     Dosage: 50000 IU, WEEKLY
     Route: 048
     Dates: start: 201501
  5. LEVOTHYROXINE. [Concomitant]
     Active Substance: LEVOTHYROXINE
     Dosage: 88 UG, 1X/DAY
     Route: 048
     Dates: start: 199701
  6. TESTOSTERONE CYPIONATE. [Concomitant]
     Active Substance: TESTOSTERONE CYPIONATE
     Indication: HYPOPITUITARISM
     Dosage: 60 MG, WEEKLY
     Route: 030
     Dates: start: 200301
  7. DEXAMETHASONE. [Concomitant]
     Active Substance: DEXAMETHASONE
     Indication: HYPOPITUITARISM
     Dosage: 0.25 MG, 1X/DAY
     Route: 048
     Dates: start: 201501

REACTIONS (2)
  - Mood altered [Not Recovered/Not Resolved]
  - Nausea [Not Recovered/Not Resolved]
